FAERS Safety Report 4347084-7 (Version None)
Quarter: 2004Q2

REPORT INFORMATION
  Report Type: 
  Country: None (occurrence: None)
  Receive Date: 20040426
  Receipt Date: 20040419
  Transmission Date: 20050107
  Serious: Yes (Hospitalization)
  Sender: FDA-Public Use
  Company Number: FR-GLAXOSMITHKLINE-B0330204A

PATIENT
  Age: 66 Year
  Sex: Male
  Weight: 70 kg

DRUGS (3)
  1. AUGMENTIN [Suspect]
     Indication: LUNG DISORDER
     Dosage: 3G PER DAY
     Route: 042
     Dates: start: 20040228, end: 20040304
  2. CIPROFLOXACIN [Suspect]
     Indication: LUNG DISORDER
     Dosage: 1.5G PER DAY
     Route: 048
     Dates: start: 20040229, end: 20040308
  3. AMOXICILLIN [Concomitant]
     Indication: LUNG DISORDER
     Dosage: 3G PER DAY
     Route: 042
     Dates: start: 20040302, end: 20040308

REACTIONS (3)
  - ALANINE AMINOTRANSFERASE INCREASED [None]
  - ASPARTATE AMINOTRANSFERASE INCREASED [None]
  - GAMMA-GLUTAMYLTRANSFERASE INCREASED [None]
